FAERS Safety Report 16775343 (Version 1)
Quarter: 2019Q3

REPORT INFORMATION
  Report Type: Report from Study
  Country: CA (occurrence: CA)
  Receive Date: 20190905
  Receipt Date: 20190905
  Transmission Date: 20191005
  Serious: Yes (Death, Other)
  Sender: FDA-Public Use
  Company Number: PHHY2018CA188083

PATIENT
  Age: 88 Year
  Sex: Female

DRUGS (6)
  1. SANDOSTATIN LAR DEPOT [Suspect]
     Active Substance: OCTREOTIDE ACETATE
     Indication: CARCINOID SYNDROME
     Dosage: 20 MG, QMO (ONCE A MONTH)
     Route: 030
     Dates: start: 20171113, end: 20190812
  2. OCTREOTIDE. [Concomitant]
     Active Substance: OCTREOTIDE
     Indication: PRODUCT USED FOR UNKNOWN INDICATION
     Dosage: 150 MCG, TID (FOR 4 DAYS)
     Route: 058
     Dates: start: 20171107
  3. LORAZEPAM TEVA GENERICS BELGIUM [Concomitant]
     Active Substance: LORAZEPAM
     Indication: PRODUCT USED FOR UNKNOWN INDICATION
     Dosage: 1 MG, QHS (AT BEDTIME)
     Route: 048
  4. NOVALEXIN [Concomitant]
     Indication: PRODUCT USED FOR UNKNOWN INDICATION
     Dosage: 500 MG, TID (EVERY 8 HOURS FOR 7)
     Route: 048
  5. PANTOPRAZOLE [Concomitant]
     Active Substance: PANTOPRAZOLE
     Indication: GASTROINTESTINAL DISORDER
     Dosage: 40 MG, BEFORE BREAKFAST
     Route: 048
  6. CELECOXIB. [Concomitant]
     Active Substance: CELECOXIB
     Indication: PRODUCT USED FOR UNKNOWN INDICATION
     Dosage: 200 MG, (IN BETWEEN MEALS)
     Route: 048

REACTIONS (10)
  - General physical condition decreased [Unknown]
  - Confusional state [Unknown]
  - Second primary malignancy [Unknown]
  - Gait inability [Unknown]
  - Colon cancer [Unknown]
  - Ovarian cancer metastatic [Unknown]
  - Ill-defined disorder [Fatal]
  - Cancer pain [Unknown]
  - Anxiety [Unknown]
  - Panic disorder [Unknown]

NARRATIVE: CASE EVENT DATE: 2019
